FAERS Safety Report 9157459 (Version 1)
Quarter: 2013Q1

REPORT INFORMATION
  Report Type: Spontaneous
  Country: US (occurrence: US)
  Receive Date: 20130312
  Receipt Date: 20130312
  Transmission Date: 20140127
  Serious: Yes (Hospitalization, Other)
  Sender: FDA-Public Use
  Company Number: US-BAYER-2013-028634

PATIENT
  Age: 65 Year
  Sex: Male

DRUGS (4)
  1. STIVARGA [Suspect]
     Indication: COLORECTAL CANCER
     Dosage: 4 TABLETS PER DAY
     Dates: start: 20121126
  2. STIVARGA [Suspect]
     Indication: COLORECTAL CANCER
     Dosage: 3 TABLETS PER DAY
     Dates: start: 20121128, end: 20121205
  3. STIVARGA [Suspect]
     Indication: COLORECTAL CANCER
     Dosage: 1 TABLET EVERY THIRD DAY
     Dates: start: 20130214
  4. STIVARGA [Suspect]
     Indication: COLORECTAL CANCER
     Dosage: 1 TABLET EVERY OTHER DAY
     Dates: start: 20130222

REACTIONS (20)
  - Hypothyroidism [None]
  - Respiratory tract infection [None]
  - Cough [None]
  - Bile duct obstruction [Recovered/Resolved]
  - Jaundice [Recovered/Resolved]
  - Hepatic enzyme increased [Recovered/Resolved]
  - Dyspnoea [None]
  - Oxygen saturation decreased [None]
  - Aphagia [None]
  - Dehydration [None]
  - Weight decreased [None]
  - Decreased appetite [None]
  - Fatigue [None]
  - Diarrhoea [None]
  - Pyrexia [None]
  - Oropharyngeal pain [None]
  - Dysphonia [None]
  - Pain in jaw [None]
  - Erythema [None]
  - Expired drug administered [None]
